FAERS Safety Report 12396544 (Version 4)
Quarter: 2016Q3

REPORT INFORMATION
  Report Type: Report from Study
  Country: US (occurrence: US)
  Receive Date: 20160524
  Receipt Date: 20160930
  Transmission Date: 20161109
  Serious: Yes (Other)
  Sender: FDA-Public Use
  Company Number: US-AMGEN-USASP2016064329

PATIENT
  Age: 75 Year
  Sex: Male

DRUGS (3)
  1. ENBREL [Suspect]
     Active Substance: ETANERCEPT
     Indication: PSORIASIS
     Dosage: 50 MG, QWK
     Route: 065
     Dates: start: 20160328
  2. PREDNISONE. [Suspect]
     Active Substance: PREDNISONE
     Indication: PRODUCT USED FOR UNKNOWN INDICATION
     Dosage: UNK
     Route: 065
  3. ENBREL [Suspect]
     Active Substance: ETANERCEPT
     Dosage: 50 MG, QWK
     Route: 065

REACTIONS (12)
  - Drug effect decreased [Unknown]
  - Respiratory tract inflammation [Unknown]
  - Ankylosing spondylitis [Unknown]
  - Underdose [Unknown]
  - Skin cancer [Unknown]
  - Tooth abscess [Recovered/Resolved]
  - Injection site haemorrhage [Unknown]
  - Fatigue [Unknown]
  - Psoriasis [Recovered/Resolved]
  - Catheterisation cardiac [Unknown]
  - Psoriatic arthropathy [Unknown]
  - Rash [Unknown]

NARRATIVE: CASE EVENT DATE: 2016
